FAERS Safety Report 5725361-2 (Version None)
Quarter: 2008Q2

REPORT INFORMATION
  Report Type: 
  Country: None (occurrence: None)
  Receive Date: 20080501
  Receipt Date: 20080421
  Transmission Date: 20081010
  Serious: Yes (Hospitalization, Other)
  Sender: FDA-Public Use
  Company Number: US-AMGEN-US275910

PATIENT
  Sex: Male
  Weight: 97.6 kg

DRUGS (1)
  1. PROCRIT [Suspect]
     Indication: RENAL FAILURE CHRONIC
     Dates: start: 20060101

REACTIONS (4)
  - DYSPNOEA [None]
  - FLUID RETENTION [None]
  - HEART TRANSPLANT REJECTION [None]
  - MEDICATION ERROR [None]
